FAERS Safety Report 10761744 (Version 1)
Quarter: 2015Q1

REPORT INFORMATION
  Report Type: Spontaneous
  Country: US (occurrence: None)
  Receive Date: 20150203
  Receipt Date: 20150203
  Transmission Date: 20150721
  Serious: Yes (Hospitalization, Other)
  Sender: FDA-Public Use
  Company Number: None

PATIENT
  Age: 54 Year
  Sex: Male
  Weight: 97.5 kg

DRUGS (7)
  1. ASPIRIN. [Concomitant]
     Active Substance: ASPIRIN
  2. ATORVASTATIN [Concomitant]
     Active Substance: ATORVASTATIN
  3. ENOXAPARIN [Concomitant]
     Active Substance: ENOXAPARIN
  4. EFFIENT [Suspect]
     Active Substance: PRASUGREL HYDROCHLORIDE
     Dosage: 1 TABLET
     Route: 048
     Dates: start: 20150124, end: 20150125
  5. LISINOPRIL. [Concomitant]
     Active Substance: LISINOPRIL
  6. PANTOPRAZAOLE [Concomitant]
  7. CARVEDILOL. [Concomitant]
     Active Substance: CARVEDILOL

REACTIONS (6)
  - Blood urine present [None]
  - Hypotension [None]
  - Unresponsive to stimuli [None]
  - Haematochezia [None]
  - Procedural complication [None]
  - Iatrogenic injury [None]

NARRATIVE: CASE EVENT DATE: 20150125
